FAERS Safety Report 10676549 (Version 1)
Quarter: 2014Q4

REPORT INFORMATION
  Report Type: Report from Study
  Country: US (occurrence: US)
  Receive Date: 20141226
  Receipt Date: 20141226
  Transmission Date: 20150529
  Serious: Yes (Death)
  Sender: FDA-Public Use
  Company Number: PHEH2014US025742

PATIENT
  Sex: Female

DRUGS (2)
  1. PROCRIT//ERYTHROPOIETIN [Concomitant]
     Indication: PRODUCT USED FOR UNKNOWN INDICATION
     Route: 065
  2. EXJADE [Suspect]
     Active Substance: DEFERASIROX
     Indication: SICKLE CELL ANAEMIA
     Dosage: 1500 MG, QD (500 MG X 3 TABLETS, DAILY)
     Route: 048
     Dates: start: 200906

REACTIONS (1)
  - Death [Fatal]
